FAERS Safety Report 7303674-0 (Version None)
Quarter: 2011Q1

REPORT INFORMATION
  Report Type: 
  Country: None (occurrence: None)
  Receive Date: 20110221
  Receipt Date: 20110215
  Transmission Date: 20110831
  Serious: Yes (Hospitalization, Other)
  Sender: FDA-Public Use
  Company Number: CH-ABBOTT-11P-151-0704512-00

PATIENT
  Age: 38 Year
  Sex: Female

DRUGS (5)
  1. HUMIRA [Suspect]
     Indication: ANKYLOSING SPONDYLITIS
     Dates: start: 20070415, end: 20080601
  2. HUMIRA [Suspect]
     Dates: start: 20090515, end: 20100929
  3. HUMIRA [Suspect]
     Route: 058
     Dates: start: 20101031, end: 20101201
  4. DIAMOX [Concomitant]
     Indication: PRODUCT USED FOR UNKNOWN INDICATION
  5. ECOFENAC [Concomitant]
     Indication: PRODUCT USED FOR UNKNOWN INDICATION

REACTIONS (5)
  - PYREXIA [None]
  - COUGH [None]
  - NASOPHARYNGITIS [None]
  - PNEUMONIA [None]
  - CONDITION AGGRAVATED [None]
